FAERS Safety Report 18211468 (Version 1)
Quarter: 2020Q3

REPORT INFORMATION
  Report Type: Spontaneous
  Country: CN (occurrence: CN)
  Receive Date: 20200831
  Receipt Date: 20200831
  Transmission Date: 20201103
  Serious: Yes (Hospitalization, Other)
  Sender: FDA-Public Use
  Company Number: CN-JNJFOC-20200838014

PATIENT
  Age: 3 Year
  Sex: Male
  Weight: 14 kg

DRUGS (1)
  1. CHILDRENS MOTRIN [Suspect]
     Active Substance: IBUPROFEN
     Indication: ANTIPYRESIS
     Dosage: MANUFACTURER:SHANGHAI JOHNSON + JOHNSON PHARMACEUTICALS LTD.
     Route: 048
     Dates: start: 20200806, end: 20200807

REACTIONS (6)
  - Secretion discharge [Recovering/Resolving]
  - Circumoral oedema [Recovering/Resolving]
  - Lip ulceration [Recovering/Resolving]
  - Scrotal swelling [Recovering/Resolving]
  - Penile ulceration [Recovering/Resolving]
  - Scrotal ulcer [Recovering/Resolving]

NARRATIVE: CASE EVENT DATE: 20200806
